FAERS Safety Report 8471927-9 (Version None)
Quarter: 2012Q2

REPORT INFORMATION
  Report Type: 
  Country: None (occurrence: None)
  Receive Date: 20120627
  Receipt Date: 20120620
  Transmission Date: 20120825
  Serious: Yes (Hospitalization)
  Sender: FDA-Public Use
  Company Number: CA-GLAXOSMITHKLINE-A0980368B

PATIENT
  Sex: Male
  Weight: 77.4 kg

DRUGS (7)
  1. CARDIZEM [Concomitant]
  2. PRADAXA [Concomitant]
  3. FLUOROURACIL [Concomitant]
  4. GSK2110183 [Suspect]
     Indication: CHRONIC LYMPHOCYTIC LEUKAEMIA
     Dosage: 125MG PER DAY
     Route: 048
     Dates: start: 20120424
  5. SERTRALINE HYDROCHLORIDE [Concomitant]
  6. OFATUMUMAB [Suspect]
     Indication: CHRONIC LYMPHOCYTIC LEUKAEMIA
     Dosage: 2000MG WEEKLY
     Route: 042
     Dates: start: 20120504
  7. LIPITOR [Concomitant]

REACTIONS (1)
  - BRONCHITIS [None]
